FAERS Safety Report 10639199 (Version 1)
Quarter: 2014Q4

REPORT INFORMATION
  Report Type: Spontaneous
  Country: US (occurrence: US)
  Receive Date: 20141208
  Receipt Date: 20141208
  Transmission Date: 20150529
  Serious: Yes (Hospitalization)
  Sender: FDA-Public Use
  Company Number: US-GILEAD-2014-0125847

PATIENT
  Age: 44 Year
  Sex: Female

DRUGS (13)
  1. TYVASO [Concomitant]
     Active Substance: TREPROSTINIL
  2. LASIX [Concomitant]
     Active Substance: FUROSEMIDE
  3. KLOR-CON [Concomitant]
     Active Substance: POTASSIUM CHLORIDE
  4. FOLIC ACID. [Concomitant]
     Active Substance: FOLIC ACID
  5. LORATADINE. [Concomitant]
     Active Substance: LORATADINE
  6. REVATIO [Concomitant]
     Active Substance: SILDENAFIL CITRATE
  7. COUMADIN [Concomitant]
     Active Substance: WARFARIN SODIUM
  8. LETAIRIS [Suspect]
     Active Substance: AMBRISENTAN
     Indication: PULMONARY HYPERTENSION
     Dosage: 5 MG, QD
     Route: 065
     Dates: start: 20120626
  9. HYDROXYUREA. [Concomitant]
     Active Substance: HYDROXYUREA
  10. PHENERGAN [Concomitant]
     Active Substance: PROMETHAZINE HYDROCHLORIDE
  11. NEXIUM [Concomitant]
     Active Substance: ESOMEPRAZOLE MAGNESIUM
  12. PERCOCET [Concomitant]
     Active Substance: ACETAMINOPHEN\OXYCODONE HYDROCHLORIDE
  13. ENALAPRIL [Concomitant]
     Active Substance: ENALAPRIL

REACTIONS (1)
  - Dyspnoea [Recovered/Resolved]

NARRATIVE: CASE EVENT DATE: 20141124
